FAERS Safety Report 9770085 (Version 1)
Quarter: 2013Q4

REPORT INFORMATION
  Report Type: Spontaneous
  Country: US (occurrence: US)
  Receive Date: 20131218
  Receipt Date: 20131218
  Transmission Date: 20140711
  Serious: No
  Sender: FDA-Public Use
  Company Number: US-VERTEX PHARMACEUTICALS INC-AE-2011-000974

PATIENT
  Age: 46 Year
  Sex: Female
  Weight: 90.46 kg

DRUGS (9)
  1. INCIVEK [Suspect]
     Indication: HEPATITIS C
     Route: 048
     Dates: start: 20110726
  2. RIBAVIRIN [Concomitant]
     Indication: HEPATITIS C
     Dates: start: 20110726
  3. PEGASYS [Concomitant]
     Indication: HEPATITIS C
     Route: 058
     Dates: start: 20110726
  4. AMITRIPTYLINE [Concomitant]
     Route: 048
  5. NEXIUM [Concomitant]
  6. CLARINEX [Concomitant]
  7. FLEXERIL [Concomitant]
     Dates: start: 20110731
  8. PRISTIQ [Concomitant]
     Route: 048
  9. SPIRONOLACTONE [Concomitant]
     Route: 048

REACTIONS (4)
  - Eyelid oedema [Not Recovered/Not Resolved]
  - Stomatitis [Not Recovered/Not Resolved]
  - Lacrimation increased [Not Recovered/Not Resolved]
  - Swelling face [Not Recovered/Not Resolved]
